FAERS Safety Report 9364208 (Version 1)
Quarter: 2013Q2

REPORT INFORMATION
  Report Type: Spontaneous
  Country: US (occurrence: US)
  Receive Date: 20130624
  Receipt Date: 20130624
  Transmission Date: 20140414
  Serious: Yes (Hospitalization, Other)
  Sender: FDA-Public Use
  Company Number: US-UCBSA-079754

PATIENT
  Age: 35 Year
  Sex: Female

DRUGS (1)
  1. CIMZIA [Suspect]
     Indication: CROHN^S DISEASE
     Dosage: EXP DATE: DEC/2013, EXP DATE: JUL/2015
     Dates: start: 20081230

REACTIONS (2)
  - Surgery [Recovered/Resolved]
  - Ulcer [Not Recovered/Not Resolved]
